FAERS Safety Report 17982653 (Version 1)
Quarter: 2020Q3

REPORT INFORMATION
  Report Type: Other
  Country: CA (occurrence: CA)
  Receive Date: 20200706
  Receipt Date: 20200706
  Transmission Date: 20201103
  Serious: Yes (Disabling)
  Sender: FDA-Public Use
  Company Number: CA-APOTEX-2020AP012825

PATIENT
  Age: 47 Year
  Sex: Female

DRUGS (1)
  1. APO?ARIPIPRAZOLE [Suspect]
     Active Substance: ARIPIPRAZOLE
     Indication: DEPRESSION
     Dosage: 3 MILLIGRAM, QD
     Route: 048

REACTIONS (4)
  - Dry mouth [Recovering/Resolving]
  - Product substitution issue [Recovering/Resolving]
  - Nausea [Recovering/Resolving]
  - Affect lability [Recovering/Resolving]
